FAERS Safety Report 6253223-3 (Version None)
Quarter: 2009Q3

REPORT INFORMATION
  Report Type: 
  Country: None (occurrence: None)
  Receive Date: 20090701
  Receipt Date: 20090623
  Transmission Date: 20100115
  Serious: Yes (Other)
  Sender: FDA-Public Use
  Company Number: US-JNJFOC-20090608338

PATIENT
  Age: 75 Year
  Sex: Female
  Weight: 60.33 kg

DRUGS (16)
  1. IMODIUM MULTI-SYMPTOM RELIEF [Suspect]
     Route: 048
  2. IMODIUM MULTI-SYMPTOM RELIEF [Suspect]
     Indication: DIARRHOEA
     Route: 048
  3. AVANDIA [Concomitant]
     Indication: DIABETES MELLITUS
  4. METFORMIN [Concomitant]
     Indication: DIABETES MELLITUS
  5. JANUVIA [Concomitant]
     Indication: DIABETES MELLITUS
  6. TOPROL-XL [Concomitant]
     Indication: HYPERTENSION
  7. DILTIAZEM [Concomitant]
  8. PREVACID [Concomitant]
     Indication: GASTROOESOPHAGEAL REFLUX DISEASE
  9. BENICAR [Concomitant]
  10. VYTORIN [Concomitant]
     Indication: BLOOD CHOLESTEROL INCREASED
     Dosage: 10-40
  11. DICYCLOMINE [Concomitant]
  12. ASPIRIN [Concomitant]
     Indication: ANTICOAGULANT THERAPY
  13. FOSAMAX [Concomitant]
     Indication: OSTEOPOROSIS
  14. CITRACAL [Concomitant]
     Indication: OSTEOPOROSIS
  15. BENEFIBER FIBER SUPPLEMENT [Concomitant]
     Indication: ABNORMAL FAECES
  16. PRILOSEC [Concomitant]
     Indication: GASTROOESOPHAGEAL REFLUX DISEASE

REACTIONS (3)
  - CHOKING [None]
  - DYSPNOEA [None]
  - THROAT IRRITATION [None]
